FAERS Safety Report 5844468-2 (Version None)
Quarter: 2008Q3

REPORT INFORMATION
  Report Type: 
  Country: None (occurrence: None)
  Receive Date: 20080812
  Receipt Date: 20080801
  Transmission Date: 20090109
  Serious: Yes (Hospitalization, Other)
  Sender: FDA-Public Use
  Company Number: 2006BI011680

PATIENT
  Age: 48 Year
  Sex: Female
  Weight: 171.4597 kg

DRUGS (30)
  1. AVONEX [Suspect]
     Indication: MULTIPLE SCLEROSIS
     Dosage: 30 UG; QW; IM, 30 UG; QW; IM, 30 UG; QW; IM
     Route: 030
     Dates: start: 20000301, end: 20031001
  2. AVONEX [Suspect]
     Indication: MULTIPLE SCLEROSIS
     Dosage: 30 UG; QW; IM, 30 UG; QW; IM, 30 UG; QW; IM
     Route: 030
     Dates: start: 20030101, end: 20080427
  3. AVONEX [Suspect]
     Indication: MULTIPLE SCLEROSIS
     Dosage: 30 UG; QW; IM, 30 UG; QW; IM, 30 UG; QW; IM
     Route: 030
     Dates: start: 20080501
  4. THYROXIN [Concomitant]
  5. STEROIDS [Concomitant]
  6. PERI-COLACE [Concomitant]
  7. NAPROXEN [Concomitant]
  8. SANTURA [Concomitant]
  9. LEVOTHYROXINE SODIUM [Concomitant]
  10. MECLIZINE [Concomitant]
  11. AMANTADINE HCL [Concomitant]
  12. COZAAR [Concomitant]
  13. ANTIVERT [Concomitant]
  14. ALAVERT [Concomitant]
  15. LASIX [Concomitant]
  16. CYMBALTA [Concomitant]
  17. SYNTHROID [Concomitant]
  18. K-DUR [Concomitant]
  19. ZETIA [Concomitant]
  20. PERCOCET [Concomitant]
  21. FLEXERIL [Concomitant]
  22. RANITIDINE [Concomitant]
  23. XANAX [Concomitant]
  24. COMPAZINE [Concomitant]
  25. FIBERCON [Concomitant]
  26. ALDACTONE [Concomitant]
  27. LORTAB [Concomitant]
  28. MAGIC MOUTHWASH [Concomitant]
  29. DIURETIC [Concomitant]
  30. ANGIOTENSIN RECEPTOR BLOCKER [Concomitant]

REACTIONS (35)
  - ABDOMINAL DISCOMFORT [None]
  - ANAEMIA [None]
  - ARTHRALGIA [None]
  - ASTHENIA [None]
  - AUTOIMMUNE THYROIDITIS [None]
  - BACK PAIN [None]
  - BILE DUCT CANCER STAGE IV [None]
  - BLOOD ALBUMIN DECREASED [None]
  - CONSTIPATION [None]
  - COUGH [None]
  - DEHYDRATION [None]
  - DIZZINESS [None]
  - DYSPHAGIA [None]
  - DYSPNOEA [None]
  - DYSPNOEA EXERTIONAL [None]
  - FATIGUE [None]
  - FEBRILE NEUTROPENIA [None]
  - FEELING COLD [None]
  - HEPATIC NEOPLASM MALIGNANT [None]
  - HYPOTENSION [None]
  - INCREASED TENDENCY TO BRUISE [None]
  - KLEBSIELLA INFECTION [None]
  - MUSCULOSKELETAL PAIN [None]
  - NASAL CONGESTION [None]
  - NAUSEA [None]
  - OBESITY [None]
  - OEDEMA PERIPHERAL [None]
  - OROPHARYNGEAL PAIN [None]
  - RENAL FAILURE ACUTE [None]
  - SEPSIS [None]
  - TACHYCARDIA [None]
  - THYROID NEOPLASM [None]
  - URINARY TRACT INFECTION [None]
  - VEIN DISORDER [None]
  - VOMITING [None]
